FAERS Safety Report 22622046 (Version 1)
Quarter: 2023Q2

REPORT INFORMATION
  Report Type: Spontaneous
  Country: US (occurrence: US)
  Receive Date: 20230620
  Receipt Date: 20230620
  Transmission Date: 20230722
  Serious: No
  Sender: FDA-Public Use
  Company Number: US-Emergent Biosolutions-23000157

PATIENT
  Age: 49 Year
  Sex: Male

DRUGS (23)
  1. CNJ-016 [Suspect]
     Active Substance: HUMAN VACCINIA VIRUS IMMUNE GLOBULIN
     Dosage: 2 DOSES, 9000 U/KG
     Route: 065
  2. CIDOFOVIR [Concomitant]
     Active Substance: CIDOFOVIR
     Indication: Monkeypox
     Dosage: 5 MILLIGRAM/KILOGRAM, WEEKLY (THREE WEEKLY DOSES)
     Route: 065
  3. PROBENECID [Concomitant]
     Active Substance: PROBENECID
     Indication: Monkeypox
     Dosage: UNK
     Route: 065
  4. TECOVIRIMAT [Concomitant]
     Active Substance: TECOVIRIMAT
     Indication: Monkeypox
     Dosage: 600 MILLIGRAM, TWICE DAILY
     Route: 048
  5. TECOVIRIMAT [Concomitant]
     Active Substance: TECOVIRIMAT
     Indication: Disease progression
     Dosage: SECOND COURSE
     Route: 048
  6. TECOVIRIMAT [Concomitant]
     Active Substance: TECOVIRIMAT
     Dosage: THIRD COURSE
     Route: 048
  7. TECOVIRIMAT [Concomitant]
     Active Substance: TECOVIRIMAT
     Dosage: 600 MILLIGRAM, BID FOR 30 DAYS
     Route: 048
  8. CEFTRIAXONE [Concomitant]
     Active Substance: CEFTRIAXONE
     Indication: Rectal abscess
     Dosage: UNK
     Route: 065
  9. CEFTRIAXONE [Concomitant]
     Active Substance: CEFTRIAXONE
     Indication: Abscess bacterial
  10. METRONIDAZOLE [Concomitant]
     Active Substance: METRONIDAZOLE
     Indication: Lymphogranuloma venereum
     Route: 048
  11. METRONIDAZOLE [Concomitant]
     Active Substance: METRONIDAZOLE
     Indication: Urethritis chlamydial
  12. METRONIDAZOLE [Concomitant]
     Active Substance: METRONIDAZOLE
     Indication: Perirectal abscess
  13. METRONIDAZOLE [Concomitant]
     Active Substance: METRONIDAZOLE
     Indication: Rectal abscess
  14. METRONIDAZOLE [Concomitant]
     Active Substance: METRONIDAZOLE
     Indication: Abscess bacterial
  15. LEVOFLOXACIN [Concomitant]
     Active Substance: LEVOFLOXACIN
     Indication: Lymphogranuloma venereum
     Dosage: UNK
     Route: 065
  16. LEVOFLOXACIN [Concomitant]
     Active Substance: LEVOFLOXACIN
     Indication: Urethritis chlamydial
  17. LEVOFLOXACIN [Concomitant]
     Active Substance: LEVOFLOXACIN
     Indication: Perirectal abscess
  18. DOXYCYCLINE [Concomitant]
     Active Substance: DOXYCYCLINE
     Indication: Lymphogranuloma venereum
     Dosage: UNK
     Route: 048
  19. DOXYCYCLINE [Concomitant]
     Active Substance: DOXYCYCLINE
     Indication: Urethritis chlamydial
  20. DOXYCYCLINE [Concomitant]
     Active Substance: DOXYCYCLINE
     Indication: Perirectal abscess
  21. AMOXICILLIN\CLAVULANIC ACID [Concomitant]
     Active Substance: AMOXICILLIN\CLAVULANIC ACID
     Indication: Rectal abscess
     Dosage: UNK
     Route: 065
  22. AMOXICILLIN\CLAVULANIC ACID [Concomitant]
     Active Substance: AMOXICILLIN\CLAVULANIC ACID
     Indication: Abscess bacterial
  23. BICTEGRAVIR\EMTRICITABINE\TENOFOVIR ALAFENAMIDE [Concomitant]
     Active Substance: BICTEGRAVIR\EMTRICITABINE\TENOFOVIR ALAFENAMIDE
     Indication: Antiretroviral therapy
     Dosage: UNK
     Route: 065

REACTIONS (1)
  - Off label use [Unknown]
